FAERS Safety Report 9481123 (Version 2)
Quarter: 2013Q3

REPORT INFORMATION
  Report Type: Spontaneous
  Country: US (occurrence: US)
  Receive Date: 20130828
  Receipt Date: 20130828
  Transmission Date: 20140515
  Serious: Yes (Other)
  Sender: FDA-Public Use
  Company Number: US-AMGEN-KDL133554

PATIENT
  Age: 63 Year
  Sex: Female

DRUGS (1)
  1. ENBREL [Suspect]
     Indication: RHEUMATOID ARTHRITIS
     Dosage: 50 MG, QWK
     Route: 058
     Dates: start: 20030101

REACTIONS (7)
  - Lymphoma [Unknown]
  - Lymphadenopathy [Unknown]
  - Lung neoplasm [Unknown]
  - Chest pain [Unknown]
  - Influenza [Unknown]
  - Injection site pain [Unknown]
  - Injection site pain [Unknown]
